FAERS Safety Report 7924409-4 (Version None)
Quarter: 2011Q4

REPORT INFORMATION
  Report Type: 
  Country: None (occurrence: None)
  Receive Date: 20111117
  Receipt Date: 20110322
  Transmission Date: 20120403
  Serious: Yes (Hospitalization)
  Sender: FDA-Public Use
  Company Number: US-AMGEN-USASP2011015566

PATIENT
  Age: 62 Year
  Sex: Male
  Weight: 83.05 kg

DRUGS (14)
  1. JANUVIA [Concomitant]
     Dosage: 25 MG, UNK
  2. RESTORIL [Concomitant]
     Dosage: 15 MG, UNK
  3. SYNTHROID [Concomitant]
     Dosage: 100 A?G, UNK
  4. PRILOSEC [Concomitant]
     Dosage: 10 MG, UNK
  5. TOPROL-XL [Concomitant]
     Dosage: 25 MG, UNK
  6. SULFASALAZINE [Concomitant]
     Dosage: 500 MG, UNK
  7. HYDRALAZINE HCL [Concomitant]
     Dosage: 10 MG, UNK
  8. GLIPIZIDE [Concomitant]
     Dosage: 5 MG, UNK
  9. IMDUR [Concomitant]
     Dosage: 120 MG, UNK
  10. ENBREL [Suspect]
     Indication: PRODUCT USED FOR UNKNOWN INDICATION
     Dosage: 50 MG, QWK
     Route: 058
  11. LASIX [Concomitant]
     Dosage: 20 MG, UNK
  12. PREDNISONE TAB [Concomitant]
     Dosage: 1 MG, UNK
  13. ASPIRIN [Concomitant]
     Dosage: 81 MG, UNK
  14. PLAVIX [Concomitant]
     Dosage: 75 MG, UNK

REACTIONS (3)
  - CARDIAC FAILURE CONGESTIVE [None]
  - PNEUMONIA [None]
  - VIRAL INFECTION [None]
